FAERS Safety Report 10106645 (Version 2)
Quarter: 2014Q2

REPORT INFORMATION
  Report Type: Spontaneous
  Country: JP (occurrence: JP)
  Receive Date: 20140424
  Receipt Date: 20140424
  Transmission Date: 20141212
  Serious: Yes (Hospitalization, Other)
  Sender: FDA-Public Use
  Company Number: JP-ALLERGAN-1404663US

PATIENT
  Age: 56 Year
  Sex: 0

DRUGS (7)
  1. BOTOX [Suspect]
     Indication: MUSCLE SPASMS
     Dosage: 300 UNITS, SINGLE
     Route: 030
     Dates: start: 20131113, end: 20131113
  2. BOTOX [Suspect]
     Dosage: 300 UNITS, SINGLE
     Route: 030
     Dates: start: 20120829, end: 20120829
  3. BOTOX [Suspect]
     Dosage: 300 UNITS, UNK
     Route: 030
     Dates: start: 20130116, end: 20130116
  4. AMLODIN OD [Concomitant]
     Indication: PRODUCT USED FOR UNKNOWN INDICATION
  5. BEZATOL SR [Concomitant]
     Indication: PRODUCT USED FOR UNKNOWN INDICATION
  6. LIORESAL [Concomitant]
     Indication: PRODUCT USED FOR UNKNOWN INDICATION
  7. MAGMITT [Concomitant]
     Indication: PRODUCT USED FOR UNKNOWN INDICATION

REACTIONS (4)
  - Epilepsy [Unknown]
  - Convulsion [Recovering/Resolving]
  - Convulsion [Recovering/Resolving]
  - Off label use [Unknown]
